FAERS Safety Report 25951609 (Version 1)
Quarter: 2025Q4

REPORT INFORMATION
  Report Type: Report from Study
  Country: US (occurrence: US)
  Receive Date: 20251023
  Receipt Date: 20251023
  Transmission Date: 20260118
  Serious: Yes (Death)
  Sender: ABBVIE
  Company Number: US-ABBVIE-6511940

PATIENT
  Age: 87 Year
  Sex: Female

DRUGS (22)
  1. VENCLEXTA [Suspect]
     Active Substance: VENETOCLAX
     Indication: Chronic lymphocytic leukaemia
     Dosage: FORM STRENGTH: 100 MG TABLET(S)?ONE TABLET BY MOUTH EVERYDAY
     Route: 048
  2. ACETAMINOPHEN [Concomitant]
     Active Substance: ACETAMINOPHEN
     Indication: Pain
     Dosage: 500 MG TABLET EVERY 6 HOURS
  3. ASPIRIN [Concomitant]
     Active Substance: ASPIRIN
     Indication: Product used for unknown indication
  4. ACETAMINOPHEN, ASPIRIN AND CAFFEINE [Concomitant]
     Active Substance: ACETAMINOPHEN\ASPIRIN\CAFFEINE
     Indication: Headache
     Dosage: TAKE 2 TABLETS BY MOUTH EVERY 6 HOURS AS NEEDED
  5. CALCIUM CARBONATE\CHOLECALCIFEROL [Concomitant]
     Active Substance: CALCIUM CARBONATE\CHOLECALCIFEROL
     Indication: Product used for unknown indication
     Dosage: 200 UNITS TAKE TABLET BY MOUTH IN THE MORNING AND 1 TABLET AT NOON AND 1 TABLET IN THE EVENING TA...
  6. VITAMIN D3 [Concomitant]
     Active Substance: CHOLECALCIFEROL
     Indication: Product used for unknown indication
     Dosage: 1000 UNITS, TAKE 1 TABLET BY MOUTH ONCE EVERY DAY (SUPPLEMENT)
  7. CYANOCOBALAMIN [Concomitant]
     Active Substance: CYANOCOBALAMIN
     Indication: Product used for unknown indication
     Dosage: TAKE 1 TABLET (1,000 MCG TOTAL) BY MOUTH IN THE MORNING
  8. LOMOTIL [Concomitant]
     Active Substance: ATROPINE SULFATE\DIPHENOXYLATE HYDROCHLORIDE
     Indication: Product used for unknown indication
     Dosage: 2.5-0.025 MG?TAKE 1 TABLET BY MOUTH 4 (FOUR) TIMES A DAY AS NEEDED FOR DIARRHEA.
  9. CYMBALTA [Concomitant]
     Active Substance: DULOXETINE HYDROCHLORIDE
     Indication: Product used for unknown indication
     Dosage: TAKE 1 CAPSULE (30 MG TOTAL) BY MOUTH IN THE MORNING
  10. ZOFRAN [Concomitant]
     Active Substance: ONDANSETRON HYDROCHLORIDE
     Indication: Nausea
     Dosage: TAKE 1 TABLET (4 NG TOTAL)BY MOUTH EVERY + (EIGHT) HOURS AS NEEDED
  11. POTASSIUM CHLORIDE [Concomitant]
     Active Substance: POTASSIUM CHLORIDE
     Indication: Product used for unknown indication
     Dosage: 10 MEQ TAKE 2 TABLETS (20 MEQ TOTAL) BY MOUTH IN THE MORNING
  12. COMPAZINE [Concomitant]
     Active Substance: PROCHLORPERAZINE MALEATE
     Indication: Nausea
     Dosage: TAKE 1 TABLET (10 MG TOTAL) BY MOUTH EVERY + (EIGHT) HOURS AS NEEDED FOR NAUSEA OR VOMITING (CHEM...
  13. syllium husk [Concomitant]
     Indication: Product used for unknown indication
     Dosage: TAKE 1 CAPSULE (0.52 G TOTAL) BY MOUTH IN THE MORNING
  14. VESICARE [Concomitant]
     Active Substance: SOLIFENACIN SUCCINATE
     Indication: Product used for unknown indication
     Dosage: TAKE TABLET (10 MG TOTAL) BY MOUTH IN THE MORNING.
  15. FERROUS SULFATE [Concomitant]
     Active Substance: FERROUS SULFATE
     Indication: Product used for unknown indication
     Dosage: 325 (65 FE) MG, TAKE 1 TABLET BY MOUTH EVERY OTHER DAY ALONG WITH VITAMIN C 250MG TABLET
  16. FOLVITE [Concomitant]
     Active Substance: FOLIC ACID
     Indication: Product used for unknown indication
     Dosage: TAKE 1 TAB BY MOUTH EVERY MORNING
     Route: 048
  17. GLUCOSAMINE SULFATE [Concomitant]
     Active Substance: GLUCOSAMINE SULFATE
     Indication: Product used for unknown indication
     Dosage: 1000 MG, TAKE BY MOUTH 2 (TWO) TIMES A DAY
  18. HYTONE [Concomitant]
     Active Substance: HYDROCORTISONE
     Indication: Rash
     Dosage: OKAY TO USE TWICE PER DAY AS NEEDED
  19. Risa-bid [Concomitant]
     Indication: Diarrhoea
     Dosage: TAKE 1 CAPSULE (2 MG TOTAL) BY?MOUTH 4 (FOUR) TIMES A DAY AS NEEDED FOR
  20. IMODIUM [Concomitant]
     Active Substance: LOPERAMIDE HYDROCHLORIDE
     Indication: Diarrhoea
     Dosage: TAKE 1 CAPSULE (2 MG TOTAL) BY MOUTH 4 (FOUR) TIMES A DAY AS NEEDED
  21. LOPRESSOR [Concomitant]
     Active Substance: METOPROLOL TARTRATE
     Indication: Product used for unknown indication
     Dosage: TAKE 1 TAB BY MOUTH TWICE A DAY ^HOLD FOR SBP LESS THAN 100
  22. PRILOSEC [Concomitant]
     Active Substance: OMEPRAZOLE MAGNESIUM
     Indication: Product used for unknown indication
     Dosage: ONE TABLET BY MOUTH ONCE EVERY DAY
     Route: 048

REACTIONS (1)
  - Death [Fatal]

NARRATIVE: CASE EVENT DATE: 20250809
